FAERS Safety Report 6031179-6 (Version None)
Quarter: 2009Q1

REPORT INFORMATION
  Report Type: 
  Country: None (occurrence: None)
  Receive Date: 20090108
  Receipt Date: 20081230
  Transmission Date: 20090719
  Serious: Yes (Hospitalization, Other)
  Sender: FDA-Public Use
  Company Number: DE-AVENTIS-200910017EU

PATIENT
  Age: 66 Year
  Sex: Female

DRUGS (19)
  1. LASIX [Suspect]
     Dosage: DOSE: UNK
  2. COREG [Suspect]
     Indication: HYPERTENSION
     Dosage: DOSE: UNK
  3. COREG [Suspect]
     Indication: CORONARY ARTERY DISEASE
     Dosage: DOSE: UNK
  4. PRINIVIL [Suspect]
     Dosage: DOSE: UNK
  5. ISORDIL [Suspect]
     Indication: HYPERTENSION
     Dosage: DOSE: UNK
  6. COREG [Concomitant]
     Route: 048
  7. COREG [Concomitant]
     Route: 048
  8. ISORDIL [Concomitant]
     Route: 048
     Dates: start: 20080923
  9. LASIX [Concomitant]
     Route: 048
  10. PRINIVIL [Concomitant]
     Indication: HYPERTENSION
     Route: 048
  11. CODE UNBROKEN [Concomitant]
     Indication: PROPHYLAXIS
     Route: 048
     Dates: start: 20061226, end: 20070311
  12. CODE UNBROKEN [Concomitant]
     Route: 048
     Dates: start: 20070322, end: 20070505
  13. CODE UNBROKEN [Concomitant]
     Route: 048
     Dates: start: 20070507, end: 20070710
  14. CODE UNBROKEN [Concomitant]
     Route: 048
     Dates: start: 20070716, end: 20071201
  15. CODE UNBROKEN [Concomitant]
     Route: 048
     Dates: start: 20071203, end: 20080728
  16. CODE UNBROKEN [Concomitant]
     Route: 048
     Dates: start: 20080730, end: 20080824
  17. CODE UNBROKEN [Concomitant]
     Route: 048
     Dates: start: 20080825, end: 20081116
  18. CODE UNBROKEN [Concomitant]
     Route: 048
     Dates: start: 20081118, end: 20081205
  19. CODE UNBROKEN [Concomitant]
     Route: 048
     Dates: start: 20081209

REACTIONS (2)
  - OVERDOSE [None]
  - RENAL FAILURE ACUTE [None]
